FAERS Safety Report 10483839 (Version 1)
Quarter: 2014Q3

REPORT INFORMATION
  Report Type: Spontaneous
  Country: US (occurrence: None)
  Receive Date: 20140929
  Receipt Date: 20140929
  Transmission Date: 20150326
  Serious: No
  Sender: FDA-Public Use
  Company Number: None

PATIENT
  Age: 53 Year
  Sex: Female
  Weight: 68.49 kg

DRUGS (1)
  1. DULOXETINE 60 MG [Suspect]
     Active Substance: DULOXETINE
     Indication: MAJOR DEPRESSION
     Route: 048

REACTIONS (3)
  - Drug effect decreased [None]
  - Product substitution issue [None]
  - Product quality issue [None]

NARRATIVE: CASE EVENT DATE: 20140724
